FAERS Safety Report 4565434-3 (Version None)
Quarter: 2005Q1

REPORT INFORMATION
  Report Type: 
  Country: None (occurrence: None)
  Receive Date: 20050131
  Receipt Date: 20041012
  Transmission Date: 20050727
  Serious: Yes (Hospitalization, Other)
  Sender: FDA-Public Use
  Company Number: DE-MERCK-0410DEU00400

PATIENT
  Age: 63 Year
  Sex: Female
  Weight: 57 kg

DRUGS (5)
  1. VIOXX [Suspect]
     Indication: BONE PAIN
     Route: 048
     Dates: start: 20011121, end: 20041001
  2. VIOXX [Suspect]
     Indication: OSTEOARTHRITIS
     Route: 048
     Dates: start: 20011121, end: 20041001
  3. LEVOTHYROXINE SODIUM [Concomitant]
     Indication: HYPOTHYROIDISM
     Route: 065
  4. FENOFIBRATE [Concomitant]
     Indication: HYPERLIPIDAEMIA
     Route: 065
     Dates: start: 19960101
  5. METFORMIN [Concomitant]
     Indication: DIABETES MELLITUS
     Route: 048
     Dates: start: 19960101, end: 20040113

REACTIONS (3)
  - CEREBROVASCULAR ACCIDENT [None]
  - SIMPLE PARTIAL SEIZURES [None]
  - TRANSIENT ISCHAEMIC ATTACK [None]
